FAERS Safety Report 6770531-8 (Version None)
Quarter: 2010Q2

REPORT INFORMATION
  Report Type: 
  Country: None (occurrence: None)
  Receive Date: 20100615
  Receipt Date: 20100528
  Transmission Date: 20101027
  Serious: Yes (Other)
  Sender: FDA-Public Use
  Company Number: US-BAYER-201021868NA

PATIENT
  Age: 40 Year
  Sex: Male
  Weight: 172 kg

DRUGS (9)
  1. MAGNEVIST [Suspect]
     Indication: NUCLEAR MAGNETIC RESONANCE IMAGING BRAIN
     Dosage: TOTAL DAILY DOSE: 10 ML  UNIT DOSE: 10 ML
     Route: 042
     Dates: start: 20100505, end: 20100505
  2. MAGNEVIST [Suspect]
     Dosage: TOTAL DAILY DOSE: 20 ML  UNIT DOSE: 20 ML
     Route: 042
     Dates: start: 20100505, end: 20100505
  3. METOPROLOL TARTRATE [Concomitant]
  4. NORFLEX [Concomitant]
  5. ^MOLTEX^ [Concomitant]
  6. ZANTAC [Concomitant]
  7. NEW PROXEN [Concomitant]
  8. UNKNOWN MEDICATION [Concomitant]
  9. SIMVASTATIN [Concomitant]

REACTIONS (5)
  - BURNING SENSATION [None]
  - DRY MOUTH [None]
  - HYPOAESTHESIA ORAL [None]
  - PARAESTHESIA [None]
  - TONGUE DISORDER [None]
